FAERS Safety Report 8553589-5 (Version None)
Quarter: 2012Q3

REPORT INFORMATION
  Report Type: 
  Country: None (occurrence: None)
  Receive Date: 20120731
  Receipt Date: 20120723
  Transmission Date: 20120928
  Serious: Yes (Other)
  Sender: FDA-Public Use
  Company Number: US-BAYER-2012-065500

PATIENT
  Age: 54 Year
  Sex: Male

DRUGS (6)
  1. NEXAVAR [Suspect]
     Indication: HEPATIC NEOPLASM MALIGNANT
     Dosage: 400 MG, BID
     Dates: start: 20120623
  2. PREDNISONE TAB [Concomitant]
  3. LAXATIVES [Concomitant]
  4. STOOL SOFTENER [Concomitant]
  5. MORPHINE SULFATE [Concomitant]
  6. LACTULOSE [Concomitant]
     Dosage: UNK UNK, BID

REACTIONS (9)
  - OROPHARYNGITIS FUNGAL [None]
  - PAIN IN EXTREMITY [None]
  - DRY SKIN [None]
  - GAIT DISTURBANCE [None]
  - DIARRHOEA [None]
  - APHONIA [None]
  - ABDOMINAL PAIN UPPER [None]
  - HYPERHIDROSIS [None]
  - DYSPHONIA [None]
